FAERS Safety Report 6039242-0 (Version None)
Quarter: 2009Q1

REPORT INFORMATION
  Report Type: 
  Country: None (occurrence: None)
  Receive Date: 20090115
  Receipt Date: 20090107
  Transmission Date: 20090719
  Serious: Yes (Other)
  Sender: FDA-Public Use
  Company Number: PHEH2009US00535

PATIENT
  Sex: Female

DRUGS (7)
  1. ZOMETA [Suspect]
     Indication: MULTIPLE MYELOMA
     Dosage: 4 MG, QMO
     Route: 042
     Dates: start: 20020701, end: 20041101
  2. CHEMOTHERAPEUTICS NOS [Concomitant]
     Dosage: UNK
     Dates: start: 20020101
  3. PREDNISONE TAB [Concomitant]
     Dosage: UNK
  4. HYZAAR [Concomitant]
     Dosage: UNK
  5. LEVOXYL [Concomitant]
     Dosage: UNK
  6. PROTONIX [Concomitant]
  7. ATIVAN [Concomitant]

REACTIONS (2)
  - BONE DISORDER [None]
  - PURULENT DISCHARGE [None]
